FAERS Safety Report 7061063-0 (Version None)
Quarter: 2010Q4

REPORT INFORMATION
  Report Type: 
  Country: None (occurrence: None)
  Receive Date: 20101026
  Receipt Date: 20101013
  Transmission Date: 20110411
  Serious: Yes (Death, Other)
  Sender: FDA-Public Use
  Company Number: US-PFIZER INC-2010131551

PATIENT
  Sex: Male
  Weight: 70.295 kg

DRUGS (3)
  1. XANAX [Suspect]
     Indication: SLEEP DISORDER
  2. EFFEXOR XR [Suspect]
     Indication: DEPRESSION
  3. EFFEXOR XR [Suspect]
     Indication: SUICIDAL IDEATION

REACTIONS (4)
  - DEPRESSION [None]
  - INSOMNIA [None]
  - OVERDOSE [None]
  - SUICIDAL IDEATION [None]
